FAERS Safety Report 16916985 (Version 1)
Quarter: 2019Q4

REPORT INFORMATION
  Report Type: Report from Study
  Country: IL (occurrence: IL)
  Receive Date: 20191015
  Receipt Date: 20191015
  Transmission Date: 20200122
  Serious: Yes (Hospitalization, Other)
  Sender: FDA-Public Use
  Company Number: IL-TEVA-2019-IL-1121777

PATIENT
  Age: 3 Year
  Sex: Male

DRUGS (1)
  1. METHOTREXATE. [Suspect]
     Active Substance: METHOTREXATE
     Indication: B PRECURSOR TYPE ACUTE LEUKAEMIA
     Dosage: HIGH DOSE
     Route: 065

REACTIONS (4)
  - Sepsis [Recovered/Resolved]
  - Mucosal inflammation [Recovered/Resolved]
  - Clostridium difficile colitis [Recovered/Resolved]
  - Klebsiella infection [Recovered/Resolved]
